FAERS Safety Report 4823289-3 (Version None)
Quarter: 2005Q4

REPORT INFORMATION
  Report Type: 
  Country: None (occurrence: None)
  Receive Date: 20051107
  Receipt Date: 20051027
  Transmission Date: 20060501
  Serious: Yes (Hospitalization)
  Sender: FDA-Public Use
  Company Number: 2005-10-1558

PATIENT
  Age: 78 Year
  Sex: Female

DRUGS (3)
  1. RIBAVIRIN [Suspect]
     Indication: HEPATITIS C
     Dosage: 400 MG ORAL
     Route: 048
     Dates: start: 20050214, end: 20050505
  2. PEGASYS [Suspect]
     Indication: HEPATITIS C
     Dosage: SUBCUTANEOUS
     Route: 058
     Dates: start: 20050214, end: 20050309
  3. ARANESP (DARBEPOETIN ALFA) INJECTABLE [Suspect]
     Dosage: 300 MCG SUBCUTANEOUS
     Route: 058
     Dates: start: 20050309, end: 20050509

REACTIONS (7)
  - ASCITES [None]
  - HEPATIC CIRRHOSIS [None]
  - HEPATIC ENCEPHALOPATHY [None]
  - HEPATITIS C [None]
  - OEDEMA [None]
  - PANCYTOPENIA [None]
  - SEPSIS [None]
